FAERS Safety Report 10874092 (Version 1)
Quarter: 2015Q1

REPORT INFORMATION
  Report Type: Report from Study
  Country: TR (occurrence: TR)
  Receive Date: 20150227
  Receipt Date: 20150227
  Transmission Date: 20150721
  Serious: Yes (Hospitalization)
  Sender: FDA-Public Use
  Company Number: TR-PFIZER INC-2015010670

PATIENT
  Age: 62 Year
  Sex: Female

DRUGS (5)
  1. ZOLEDRONAT [Concomitant]
  2. PALBOCICLIB [Suspect]
     Active Substance: PALBOCICLIB
     Dosage: UNK
     Dates: end: 20150106
  3. LISINOPRIL. [Concomitant]
     Active Substance: LISINOPRIL
  4. MILNACIPRAN [Suspect]
     Active Substance: MILNACIPRAN
     Dosage: UNK
  5. LETROZOLE. [Concomitant]
     Active Substance: LETROZOLE

REACTIONS (6)
  - Electrocardiogram QT prolonged [Recovering/Resolving]
  - Anaemia [Recovered/Resolved]
  - Bone marrow failure [Unknown]
  - Aspartate aminotransferase increased [Unknown]
  - Nausea [Unknown]
  - Gamma-glutamyltransferase increased [Unknown]

NARRATIVE: CASE EVENT DATE: 2014
